FAERS Safety Report 7927111-8 (Version None)
Quarter: 2011Q4

REPORT INFORMATION
  Report Type: 
  Country: None (occurrence: None)
  Receive Date: 20111117
  Receipt Date: 20111117
  Transmission Date: 20120403
  Serious: Yes (Death)
  Sender: FDA-Public Use
  Company Number: None

PATIENT
  Sex: Male
  Weight: 95.2554 kg

DRUGS (12)
  1. ASPIRIN [Concomitant]
  2. CELEBREX [Concomitant]
  3. KEPPRA [Concomitant]
  4. NAMENDA [Concomitant]
  5. CLOPIDOGREL [Suspect]
     Indication: ANTIPLATELET THERAPY
     Dosage: 75 MG. QD
     Dates: start: 20040803
  6. LIPITOR [Concomitant]
  7. BENECAR [Concomitant]
  8. LEVOTHYROXINE SODIUM [Concomitant]
  9. IPRATROPILUM [Concomitant]
  10. ALLOPURINOL [Concomitant]
  11. PRESTIQUE [Concomitant]
  12. COREG [Concomitant]

REACTIONS (1)
  - LUNG NEOPLASM MALIGNANT [None]
